FAERS Safety Report 8829967 (Version 1)
Quarter: 2012Q4

REPORT INFORMATION
  Report Type: 
  Country: US (occurrence: US)
  Receive Date: 20121008
  Receipt Date: 20121008
  Transmission Date: 20130627
  Serious: Yes (Other)
  Sender: FDA-Public Use
  Company Number: US-ROCHE-1132018

PATIENT
  Sex: Female
  Weight: 48.12 kg

DRUGS (12)
  1. RITUXAN [Suspect]
     Indication: CHRONIC LYMPHOCYTIC LEUKAEMIA REFRACTORY
     Dosage: 585 mg weekly
     Route: 065
     Dates: start: 19980708, end: 19980731
  2. RITUXAN [Suspect]
     Dosage: 600 mg weekly
     Route: 065
     Dates: start: 20010212, end: 20010402
  3. LEUKERAN [Concomitant]
     Route: 065
  4. PREDNISONE [Concomitant]
     Dosage: 100 mg for 4 days
     Route: 065
     Dates: start: 19920507, end: 19920916
  5. PREDNISONE [Concomitant]
     Route: 065
     Dates: start: 19950606, end: 19960311
  6. CYTOXAN [Concomitant]
  7. VINCRISTINE [Concomitant]
     Route: 065
     Dates: start: 19961017, end: 19970402
  8. VINCRISTINE [Concomitant]
     Route: 065
     Dates: start: 19990407, end: 19990511
  9. FLUDARABINE [Concomitant]
     Dosage: 40 mg daily three times
     Route: 065
     Dates: start: 19971105, end: 19980216
  10. FLUDARABINE [Concomitant]
     Dosage: 40 mg daily two times
     Route: 065
     Dates: start: 19990920, end: 20000207
  11. SEPTRA DS [Concomitant]
     Route: 048
  12. LORAZEPAM [Concomitant]
     Route: 065

REACTIONS (12)
  - Splenomegaly [Unknown]
  - Hepatomegaly [Unknown]
  - Lymphadenopathy [Unknown]
  - Anaemia [Unknown]
  - Abdominal pain [Unknown]
  - Early satiety [Unknown]
  - Decreased appetite [Unknown]
  - Pain in extremity [Unknown]
  - Fatigue [Unknown]
  - Disease progression [Unknown]
  - Pancytopenia [Unknown]
  - Abdominal distension [Unknown]
